FAERS Safety Report 11898657 (Version 3)
Quarter: 2020Q2

REPORT INFORMATION
  Report Type: Report from Study
  Country: CA (occurrence: CA)
  Receive Date: 20160108
  Receipt Date: 20200623
  Transmission Date: 20200713
  Serious: Yes (Life-Threatening)
  Sender: FDA-Public Use
  Company Number: CA-JNJFOC-20160104690

PATIENT
  Age: 35 Year
  Sex: Female
  Weight: 86.71 kg

DRUGS (10)
  1. REMICADE [Suspect]
     Active Substance: INFLIXIMAB
     Indication: CROHN^S DISEASE
     Route: 042
     Dates: start: 20060308
  2. REMICADE [Suspect]
     Active Substance: INFLIXIMAB
     Indication: SPONDYLOARTHROPATHY
     Dosage: THERAPY DURATION WAS REPORTED AS APPROXIMATELY 17 MONTHS
     Route: 042
     Dates: start: 20140428, end: 20151023
  3. REMICADE [Suspect]
     Active Substance: INFLIXIMAB
     Dosage: CONTINUES TO RECEIVE
     Route: 042
  4. OXYCOCET [Concomitant]
     Active Substance: ACETAMINOPHEN\OXYCODONE HYDROCHLORIDE
     Indication: CROHN^S DISEASE
     Route: 048
     Dates: start: 2006
  5. FENTANYL. [Concomitant]
     Active Substance: FENTANYL
     Indication: CROHN^S DISEASE
     Route: 065
     Dates: start: 2011
  6. METHOTREXATE. [Suspect]
     Active Substance: METHOTREXATE
     Indication: CROHN^S DISEASE
     Route: 048
     Dates: start: 2003
  7. LEUCOVORIN. [Concomitant]
     Active Substance: LEUCOVORIN
     Indication: SPONDYLOARTHROPATHY
  8. LEUCOVORIN. [Concomitant]
     Active Substance: LEUCOVORIN
     Indication: CROHN^S DISEASE
     Route: 048
     Dates: start: 2009
  9. REMICADE [Suspect]
     Active Substance: INFLIXIMAB
     Route: 042
     Dates: start: 20151120
  10. PREDNISONE. [Suspect]
     Active Substance: PREDNISONE
     Indication: PRODUCT USED FOR UNKNOWN INDICATION
     Route: 048
     Dates: start: 2003, end: 2006

REACTIONS (4)
  - Malignant melanoma in situ [Unknown]
  - Off label use [Unknown]
  - Product use in unapproved indication [Unknown]
  - Product use issue [Unknown]

NARRATIVE: CASE EVENT DATE: 20060308
